FAERS Safety Report 13736031 (Version 3)
Quarter: 2017Q3

REPORT INFORMATION
  Report Type: Spontaneous
  Country: US (occurrence: US)
  Receive Date: 20170710
  Receipt Date: 20170803
  Transmission Date: 20171127
  Serious: Yes (Death, Hospitalization, Other)
  Sender: FDA-Public Use
  Company Number: US-UNITED THERAPEUTICS-UNT-2017-009981

PATIENT
  Age: 59 Year
  Sex: Female
  Weight: 39.2 kg

DRUGS (1)
  1. REMODULIN [Suspect]
     Active Substance: TREPROSTINIL
     Indication: PULMONARY HYPERTENSION
     Dosage: 0.437 ?G/KG, CONTINUING
     Route: 041
     Dates: start: 20111011

REACTIONS (5)
  - Cardiac failure [Fatal]
  - Pneumothorax [Unknown]
  - Cerebrovascular accident [Unknown]
  - Fall [Recovered/Resolved with Sequelae]
  - Disease progression [Fatal]

NARRATIVE: CASE EVENT DATE: 20170617
